FAERS Safety Report 17578546 (Version 2)
Quarter: 2020Q3

REPORT INFORMATION
  Report Type: Report from Study
  Country: BR (occurrence: BR)
  Receive Date: 20200324
  Receipt Date: 20200831
  Transmission Date: 20201102
  Serious: Yes (Other)
  Sender: FDA-Public Use
  Company Number: NVSC2020BR079144

PATIENT
  Age: 79 Year
  Sex: Female

DRUGS (3)
  1. FULVESTRANT. [Suspect]
     Active Substance: FULVESTRANT
     Indication: PRODUCT USED FOR UNKNOWN INDICATION
     Dosage: UNK
     Route: 065
     Dates: start: 202001
  2. KISQALI [Suspect]
     Active Substance: RIBOCICLIB
     Indication: BREAST CANCER METASTATIC
     Dosage: 3 DF, QD (EVERY DAY AT 10.30 AM, FOR 21 DAYS)
     Route: 065
     Dates: start: 20200106
  3. ZOMETA [Suspect]
     Active Substance: ZOLEDRONIC ACID
     Indication: BONE DISORDER
     Dosage: UNK
     Route: 065

REACTIONS (23)
  - Dyspnoea [Unknown]
  - Lung disorder [Unknown]
  - Quality of life decreased [Not Recovered/Not Resolved]
  - Product dose omission issue [Unknown]
  - Hypersensitivity [Not Recovered/Not Resolved]
  - Confusional state [Unknown]
  - Varicose vein [Not Recovered/Not Resolved]
  - Loss of personal independence in daily activities [Unknown]
  - Fear [Unknown]
  - Cardiovascular insufficiency [Not Recovered/Not Resolved]
  - Metastasis [Unknown]
  - Crying [Recovered/Resolved]
  - Depression [Recovering/Resolving]
  - Paraesthesia [Not Recovered/Not Resolved]
  - Anxiety [Not Recovered/Not Resolved]
  - Poor quality sleep [Not Recovered/Not Resolved]
  - Fatigue [Recovered/Resolved]
  - Influenza [Recovered/Resolved]
  - Discomfort [Recovered/Resolved]
  - Muscle tightness [Not Recovered/Not Resolved]
  - Overdose [Unknown]
  - Malaise [Recovered/Resolved]
  - Fatigue [Not Recovered/Not Resolved]

NARRATIVE: CASE EVENT DATE: 202001
